FAERS Safety Report 5612914-5 (Version None)
Quarter: 2008Q1

REPORT INFORMATION
  Report Type: 
  Country: None (occurrence: None)
  Receive Date: 20080204
  Receipt Date: 20080125
  Transmission Date: 20080703
  Serious: Yes (Life-Threatening)
  Sender: FDA-Public Use
  Company Number: US-BOEHRINGER INGELHEIM GMBH, GERMANY-2008-BP-01571RO

PATIENT

DRUGS (1)
  1. LITHIUM CARBONATE CAPSULES USP, 150 MG [Suspect]

REACTIONS (3)
  - DRUG CHEMICAL INCOMPATIBILITY [None]
  - HEART RATE IRREGULAR [None]
  - TACHYCARDIA [None]
